FAERS Safety Report 16614905 (Version 1)
Quarter: 2019Q3

REPORT INFORMATION
  Report Type: Spontaneous
  Country: FR (occurrence: FR)
  Receive Date: 20190723
  Receipt Date: 20190723
  Transmission Date: 20191004
  Serious: Yes (Hospitalization)
  Sender: FDA-Public Use
  Company Number: FR-TEVA-2019-FR-1080951

PATIENT
  Age: 91 Year
  Sex: Female
  Weight: 70 kg

DRUGS (7)
  1. KARDEGIC [Concomitant]
     Active Substance: ASPIRIN DL-LYSINE
  2. CALTRATE [Concomitant]
     Active Substance: CALCIUM CARBONATE
  3. FUROSEMIDE. [Suspect]
     Active Substance: FUROSEMIDE
     Indication: HYPERTENSION
     Dosage: 60 MILLIGRAM DAILY;
     Route: 048
  4. CHLORHYDRATE DE METFORMINE [Concomitant]
     Active Substance: METFORMIN HYDROCHLORIDE
  5. CHLORHYDRATE DE LERCANIDIPINE [Suspect]
     Active Substance: LERCANIDIPINE HYDROCHLORIDE
     Indication: HYPERTENSION
     Dosage: 10 MILLIGRAM DAILY;
     Route: 048
  6. MIRTAZAPINE. [Suspect]
     Active Substance: MIRTAZAPINE
     Indication: MAJOR DEPRESSION
     Dosage: 15 MILLIGRAM DAILY;
     Route: 048
  7. MOVICOL [Concomitant]
     Active Substance: POLYETHYLENE GLYCOL 3350\POTASSIUM CHLORIDE\SODIUM BICARBONATE\SODIUM CHLORIDE

REACTIONS (3)
  - Fall [Recovering/Resolving]
  - Dehydration [Recovered/Resolved]
  - Acute kidney injury [Not Recovered/Not Resolved]

NARRATIVE: CASE EVENT DATE: 20190619
